FAERS Safety Report 24066742 (Version 1)
Quarter: 2024Q3

REPORT INFORMATION
  Report Type: Spontaneous
  Country: US (occurrence: None)
  Receive Date: 20240709
  Receipt Date: 20240709
  Transmission Date: 20241017
  Serious: No
  Sender: Public
  Company Number: None

PATIENT
  Age: 67 Year
  Sex: Female
  Weight: 91.63 kg

DRUGS (2)
  1. XELJANZ [Suspect]
     Active Substance: TOFACITINIB CITRATE
     Indication: Arthropathy
     Dosage: OTHER QUANTITY : TAKE 1 TABLET;?FREQUENCY : TWICE A DAY;?
     Route: 048
     Dates: start: 202405
  2. XELJANZ [Suspect]
     Active Substance: TOFACITINIB CITRATE
     Indication: Rheumatoid arthritis

REACTIONS (1)
  - Urinary tract infection [None]
